FAERS Safety Report 5570118-9 (Version None)
Quarter: 2007Q4

REPORT INFORMATION
  Report Type: 
  Country: None (occurrence: None)
  Receive Date: 20071220
  Receipt Date: 20071212
  Transmission Date: 20080405
  Serious: Yes (Hospitalization, Disabling, Other)
  Sender: FDA-Public Use
  Company Number: US-PFIZER INC-2006134819

PATIENT
  Sex: Male
  Weight: 104.3 kg

DRUGS (9)
  1. CELEBREX [Suspect]
     Indication: NECK PAIN
  2. CELEBREX [Suspect]
     Indication: ARTHRITIS
  3. CELEBREX [Suspect]
     Indication: BACK PAIN
  4. BEXTRA [Suspect]
     Indication: NECK PAIN
     Dates: start: 19990101
  5. BEXTRA [Suspect]
     Indication: BACK PAIN
  6. BEXTRA [Suspect]
     Indication: ARTHRITIS
  7. VIOXX [Suspect]
     Indication: ARTHRITIS
  8. VIOXX [Suspect]
     Indication: NECK PAIN
  9. VIOXX [Suspect]
     Indication: BACK PAIN

REACTIONS (5)
  - ANXIETY [None]
  - CARDIAC DISORDER [None]
  - DEPRESSION [None]
  - MYOCARDIAL INFARCTION [None]
  - NAUSEA [None]
